FAERS Safety Report 23321653 (Version 1)
Quarter: 2023Q4

REPORT INFORMATION
  Report Type: Spontaneous
  Country: AU (occurrence: AU)
  Receive Date: 20231220
  Receipt Date: 20231220
  Transmission Date: 20240110
  Serious: Yes (Other)
  Sender: FDA-Public Use
  Company Number: AU-AMGEN-AUSSP2023218693

PATIENT
  Age: 66 Year
  Sex: Female

DRUGS (2)
  1. PROLIA [Suspect]
     Active Substance: DENOSUMAB
     Indication: Osteoporosis
     Dosage: 60 MILLIGRAM
     Route: 058
  2. IRON [Suspect]
     Active Substance: IRON
     Indication: Product used for unknown indication
     Dosage: UNK
     Route: 065

REACTIONS (8)
  - Hypocalcaemia [Unknown]
  - Drug interaction [Unknown]
  - Blood phosphorus decreased [Unknown]
  - Blood magnesium decreased [Unknown]
  - Blood parathyroid hormone increased [Unknown]
  - Blood 25-hydroxycholecalciferol decreased [Unknown]
  - Fatigue [Unknown]
  - Paraesthesia [Unknown]
